FAERS Safety Report 8771102 (Version 4)
Quarter: 2013Q1

REPORT INFORMATION
  Report Type: Spontaneous
  Country: US (occurrence: US)
  Receive Date: 20120906
  Receipt Date: 20130116
  Transmission Date: 20140127
  Serious: Yes (Hospitalization, Disabling, Other)
  Sender: FDA-Public Use
  Company Number: US-009507513-1109USA01919

PATIENT
  Sex: 0

DRUGS (9)
  1. FOSAMAX [Suspect]
     Indication: OSTEOPENIA
     Dosage: 70 MG, QW
     Route: 048
     Dates: start: 200203, end: 200801
  2. FOSAMAX [Suspect]
     Indication: OSTEOPOROSIS
  3. MK-9278 [Concomitant]
     Route: 048
     Dates: start: 2000
  4. FOSAMAX [Suspect]
     Indication: OSTEOPENIA
     Dosage: 70 MG, QW
     Route: 048
     Dates: start: 20081005, end: 20090409
  5. FOSAMAX [Suspect]
     Indication: OSTEOPOROSIS
  6. FOSAMAX [Suspect]
     Indication: OSTEOPENIA
     Dosage: 70 MG, UNK
     Route: 048
     Dates: start: 20080224, end: 20080324
  7. FOSAMAX [Suspect]
     Indication: OSTEOPOROSIS
  8. FOSAMAX [Suspect]
     Indication: OSTEOPENIA
     Dosage: 70 MG, UNK
     Route: 048
     Dates: start: 20080516, end: 20080913
  9. FOSAMAX [Suspect]
     Indication: OSTEOPOROSIS

REACTIONS (39)
  - Open reduction of fracture [Unknown]
  - Fall [Unknown]
  - Anaemia [Unknown]
  - Femur fracture [Recovered/Resolved]
  - Panic attack [Not Recovered/Not Resolved]
  - Post-traumatic stress disorder [Unknown]
  - Bone disorder [Unknown]
  - Vitamin D deficiency [Unknown]
  - Hyperlipidaemia [Unknown]
  - Diabetes mellitus [Unknown]
  - Decreased appetite [Unknown]
  - Intervertebral disc degeneration [Unknown]
  - Hypoaesthesia [Recovered/Resolved]
  - Osteoarthritis [Unknown]
  - Seasonal allergy [Unknown]
  - Anxiety [Recovering/Resolving]
  - Tension headache [Unknown]
  - Cerumen impaction [Unknown]
  - Urinary tract infection [Unknown]
  - Bronchitis [Unknown]
  - Cyst [Unknown]
  - Hyperparathyroidism primary [Unknown]
  - Epicondylitis [Unknown]
  - Depression [Recovering/Resolving]
  - Adverse drug reaction [Unknown]
  - Uterine cervix atrophy [Unknown]
  - Breast calcifications [Unknown]
  - Thyroid neoplasm [Unknown]
  - Parathyroid tumour benign [Unknown]
  - Medical device discomfort [Unknown]
  - Spina bifida occulta [Unknown]
  - Myalgia [Unknown]
  - Drug hypersensitivity [Unknown]
  - Joint crepitation [Unknown]
  - Nausea [Not Recovered/Not Resolved]
  - Asthenia [Unknown]
  - Drug hypersensitivity [Recovered/Resolved]
  - Nausea [Unknown]
  - Neck pain [Unknown]
